FAERS Safety Report 7034634-5 (Version None)
Quarter: 2010Q4

REPORT INFORMATION
  Report Type: 
  Country: None (occurrence: None)
  Receive Date: 20101008
  Receipt Date: 20100928
  Transmission Date: 20110411
  Serious: Yes (Hospitalization)
  Sender: FDA-Public Use
  Company Number: US-ELI_LILLY_AND_COMPANY-US201010000140

PATIENT
  Sex: Male
  Weight: 65.896 kg

DRUGS (14)
  1. PRASUGREL HYDROCHLORIDE [Suspect]
     Indication: ACUTE CORONARY SYNDROME
     Dates: start: 20100707
  2. CLOPIDOGREL [Concomitant]
     Dosage: 75 MG, UNK
     Dates: start: 20100629
  3. CLOPIDOGREL [Concomitant]
     Dosage: 75 MG, UNK
  4. CARVEDILOL [Concomitant]
     Indication: HYPERTENSION
     Dates: start: 20070101
  5. VYTORIN [Concomitant]
     Indication: HYPERLIPIDAEMIA
     Dates: start: 20100301
  6. BENICAR [Concomitant]
     Indication: HYPERTENSION
     Dates: start: 20080101
  7. RANEXA [Concomitant]
     Indication: CORONARY ARTERY DISEASE
     Dates: start: 20020101
  8. XANAX [Concomitant]
     Indication: PROPHYLAXIS
     Dates: start: 20070101
  9. MULTI-VITAMIN [Concomitant]
     Indication: PROPHYLAXIS
     Dates: start: 19830101
  10. LOVAZA [Concomitant]
     Indication: HYPERLIPIDAEMIA
     Dates: start: 20000101
  11. ANTIVERT [Concomitant]
     Indication: BALANCE DISORDER
     Dates: start: 20090101
  12. TRILIPIX [Concomitant]
     Indication: HYPERLIPIDAEMIA
     Dates: start: 20100101
  13. NITROGLYCERIN [Concomitant]
     Indication: PROPHYLAXIS
     Dates: start: 19830101
  14. VITAMIN D [Concomitant]
     Indication: PROPHYLAXIS
     Dates: start: 20080101

REACTIONS (3)
  - LABYRINTHITIS [None]
  - TRANSIENT ISCHAEMIC ATTACK [None]
  - URINARY TRACT INFECTION [None]
